FAERS Safety Report 12458522 (Version 1)
Quarter: 2016Q2

REPORT INFORMATION
  Report Type: Spontaneous
  Country: US (occurrence: None)
  Receive Date: 20160610
  Receipt Date: 20160610
  Transmission Date: 20160815
  Serious: Yes (Other)
  Sender: FDA-Public Use
  Company Number: None

PATIENT
  Age: 48 Year
  Sex: Female

DRUGS (4)
  1. IBESARTIN [Concomitant]
  2. SUMATRIPTAN. [Concomitant]
     Active Substance: SUMATRIPTAN
  3. MULTI VITAMIN [Concomitant]
     Active Substance: VITAMINS
  4. ZECUITY [Suspect]
     Active Substance: SUMATRIPTAN SUCCINATE
     Indication: MIGRAINE
     Dosage: 3 PATCH(ES) ONCE A DAY APPLIED AS MEDICATED PATCH TO SKIN
     Route: 061
     Dates: start: 20160413, end: 20160420

REACTIONS (2)
  - Application site burn [None]
  - Application site scar [None]

NARRATIVE: CASE EVENT DATE: 20160420
